FAERS Safety Report 25827905 (Version 2)
Quarter: 2025Q4

REPORT INFORMATION
  Report Type: Other
  Country: US (occurrence: US)
  Receive Date: 20250921
  Receipt Date: 20251125
  Transmission Date: 20260118
  Serious: No
  Sender: TRAVERE THERAPEUTICS
  Company Number: US-TRAVERE-2025TVT01308

PATIENT
  Age: 56 Year
  Sex: Male

DRUGS (3)
  1. FILSPARI [Suspect]
     Active Substance: SPARSENTAN
     Indication: IgA nephropathy
     Route: 048
     Dates: start: 20250719
  2. FILSPARI [Suspect]
     Active Substance: SPARSENTAN
     Route: 048
  3. OMEPRAZOLE [Concomitant]
     Active Substance: OMEPRAZOLE

REACTIONS (3)
  - Dyspepsia [Unknown]
  - Gastrooesophageal reflux disease [None]
  - Nipple pain [None]

NARRATIVE: CASE EVENT DATE: 20250719
